FAERS Safety Report 15125029 (Version 1)
Quarter: 2018Q3

REPORT INFORMATION
  Report Type: Spontaneous
  Country: US (occurrence: US)
  Receive Date: 20180706
  Receipt Date: 20180706
  Transmission Date: 20181010
  Serious: Yes (Life-Threatening, Hospitalization, Disabling, Other)
  Sender: FDA-Public Use
  Company Number: None

PATIENT
  Age: 30 Year
  Sex: Female

DRUGS (1)
  1. EPIDURAL MARCAINE AND FENTANYL [Suspect]
     Active Substance: BUPIVACAINE\FENTANYL
     Indication: ANTIBIOTIC THERAPY
     Dates: start: 20180610

REACTIONS (11)
  - Toxicity to various agents [None]
  - Maternal exposure during pregnancy [None]
  - Seizure [None]
  - Wrong technique in product usage process [None]
  - Product label confusion [None]
  - Cardiac arrest [None]
  - Pregnancy [None]
  - Product preparation error [None]
  - Maternal drugs affecting foetus [None]
  - Incorrect route of drug administration [None]
  - Caesarean section [None]

NARRATIVE: CASE EVENT DATE: 20180610
